FAERS Safety Report 5266914-8 (Version None)
Quarter: 2007Q1

REPORT INFORMATION
  Report Type: 
  Country: None (occurrence: None)
  Receive Date: 20070316
  Receipt Date: 20070305
  Transmission Date: 20070707
  Serious: Yes (Death, Other)
  Sender: FDA-Public Use
  Company Number: AU-NOVOPROD-261369

PATIENT
  Age: 15 Month
  Sex: Male
  Weight: 8 kg

DRUGS (9)
  1. NOVOSEVEN [Suspect]
     Indication: HAEMORRHAGE
     Dosage: 1.2 MG, SINGLE
     Route: 042
     Dates: start: 20050728
  2. HEPARIN [Concomitant]
  3. APROTININ [Concomitant]
     Dosage: BEFORE NOVOSEVEN
  4. TRASYLOL [Concomitant]
  5. PROTAMINE SULFATE [Concomitant]
  6. BLOOD CELLS, PACKED HUMAN [Concomitant]
     Dosage: 4 U, UNK
  7. FRESH FROZEN PLASMA [Concomitant]
     Dosage: .6 U, UNK
  8. CRYOPRECIPITATES [Concomitant]
     Dosage: 6 U, UNK
  9. PLATELETS [Concomitant]
     Dosage: 4 U, UNK

REACTIONS (1)
  - RENAL VEIN THROMBOSIS [None]
